FAERS Safety Report 5329824-3 (Version None)
Quarter: 2007Q2

REPORT INFORMATION
  Report Type: 
  Country: None (occurrence: None)
  Receive Date: 20070517
  Receipt Date: 20070517
  Transmission Date: 20071010
  Serious: Yes (Other)
  Sender: FDA-Public Use
  Company Number: None

PATIENT
  Sex: Female

DRUGS (1)
  1. ZOLIPDEM 10 MG [Suspect]
     Dosage: 1 PO HS PRN
     Route: 048
     Dates: start: 20070513

REACTIONS (3)
  - DYSPHAGIA [None]
  - OEDEMA PERIPHERAL [None]
  - SWELLING FACE [None]
